FAERS Safety Report 23381514 (Version 1)
Quarter: 2024Q1

REPORT INFORMATION
  Report Type: Spontaneous
  Country: SG (occurrence: SG)
  Receive Date: 20240109
  Receipt Date: 20240109
  Transmission Date: 20240409
  Serious: Yes (Hospitalization, Other)
  Sender: FDA-Public Use
  Company Number: None

PATIENT
  Sex: Female

DRUGS (6)
  1. PREDNISOLONE [Suspect]
     Active Substance: PREDNISOLONE
     Indication: Haemangioma-thrombocytopenia syndrome
     Dosage: STARTED AT A DOSE OF 1 MILLIGRAM/KILOGRAM, QD
     Route: 048
     Dates: start: 202111
  2. PROPRANOLOL [Suspect]
     Active Substance: PROPRANOLOL HYDROCHLORIDE
     Indication: Infantile haemangioma
     Dosage: 1MG/KG/DAY IN 3 DIVIDED DOSES
     Route: 048
     Dates: start: 202110, end: 2021
  3. PROPRANOLOL [Suspect]
     Active Substance: PROPRANOLOL HYDROCHLORIDE
     Indication: Haemangioma-thrombocytopenia syndrome
     Dosage: THEN INCREASED TO 2 MG/KG/DAY AFTER 1 WEEK
     Route: 048
     Dates: start: 2021, end: 2021
  4. PROPRANOLOL [Suspect]
     Active Substance: PROPRANOLOL HYDROCHLORIDE
     Dosage: INCREASED TO 3 MG/KG/DAY
     Route: 048
     Dates: start: 202111
  5. VINCRISTINE [Concomitant]
     Active Substance: VINCRISTINE
     Indication: Haemangioma-thrombocytopenia syndrome
     Dosage: 0.5 MILLIGRAM/SQ. METER, ONCE A WEEK, OF BODY SURFACE AREA ON WEEKLY BASIS
     Route: 065
     Dates: start: 2021
  6. MEROPENEM [Concomitant]
     Active Substance: MEROPENEM
     Indication: Escherichia infection
     Dosage: UNK
     Route: 042
     Dates: start: 202111

REACTIONS (4)
  - Haemangioma-thrombocytopenia syndrome [Recovered/Resolved]
  - Condition aggravated [Recovered/Resolved]
  - Cushingoid [Unknown]
  - Off label use [Unknown]

NARRATIVE: CASE EVENT DATE: 20210101
